FAERS Safety Report 6661780-8 (Version None)
Quarter: 2010Q1

REPORT INFORMATION
  Report Type: 
  Country: None (occurrence: None)
  Receive Date: 20100331
  Receipt Date: 20090625
  Transmission Date: 20100710
  Serious: Yes (Other)
  Sender: FDA-Public Use
  Company Number: US-BRISTOL-MYERS SQUIBB COMPANY-14671184

PATIENT
  Age: 69 Year
  Sex: Male

DRUGS (5)
  1. ERBITUX [Suspect]
     Indication: RECTAL CANCER STAGE IV
     Dosage: 400 MG/M2= 800MG
     Route: 042
     Dates: start: 20090617, end: 20090617
  2. ERBITUX [Suspect]
     Indication: COLORECTAL CANCER
     Dosage: 400 MG/M2= 800MG
     Route: 042
     Dates: start: 20090617, end: 20090617
  3. DIPHENHYDRAMINE HCL [Concomitant]
     Indication: PREMEDICATION
     Route: 042
  4. HYDROCORTISONE [Concomitant]
     Indication: PREMEDICATION
     Dosage: 1 DF- 100 (NO UNITS SPECIFIED)
  5. ALBUTEROL [Concomitant]
     Indication: PREMEDICATION
     Dosage: ALBUTEROL NEBS 30

REACTIONS (7)
  - ANAPHYLACTIC REACTION [None]
  - CONSCIOUSNESS FLUCTUATING [None]
  - DISORIENTATION [None]
  - DIZZINESS [None]
  - HYPERHIDROSIS [None]
  - HYPOTENSION [None]
  - STARING [None]
